FAERS Safety Report 9365157 (Version 1)
Quarter: 2013Q2

REPORT INFORMATION
  Report Type: Spontaneous
  Country: AU (occurrence: AU)
  Receive Date: 20130624
  Receipt Date: 20130624
  Transmission Date: 20140414
  Serious: Yes (Death, Other)
  Sender: FDA-Public Use
  Company Number: PHHY2013AU063318

PATIENT
  Age: 44 Year
  Sex: Male

DRUGS (9)
  1. VORICONAZOLE [Suspect]
     Indication: SCEDOSPORIUM INFECTION
     Dosage: 300 MG, BID ON DAY 27
     Route: 048
  2. VORICONAZOLE [Suspect]
     Dosage: 250 MG, BID
  3. VORICONAZOLE [Suspect]
     Dosage: 300 MG, BID ON DAY 87
  4. VORICONAZOLE [Suspect]
     Dosage: 400 MG, BID, ON DAY 114
  5. VORICONAZOLE [Suspect]
     Dosage: 500 MG, BID ON DAY 239
  6. VORICONAZOLE [Suspect]
     Indication: SCEDOSPORIUM INFECTION
     Dosage: 6 MG/KG AS LOADING DOSE
     Route: 042
  7. VORICONAZOLE [Suspect]
     Dosage: 4 MG/KG, BID
  8. SOTALOL [Concomitant]
  9. TERBINAFINE [Concomitant]
     Indication: SCEDOSPORIUM INFECTION
     Dosage: 250 MG, BID
     Route: 048

REACTIONS (14)
  - Lung cancer metastatic [None]
  - Malignant neoplasm progression [Fatal]
  - Toxicity to various agents [Unknown]
  - Pulmonary mass [Unknown]
  - Staphylococcal infection [Recovered/Resolved]
  - Wound dehiscence [Unknown]
  - Muscle necrosis [Unknown]
  - Cholestatic liver injury [Unknown]
  - Hepatic function abnormal [Unknown]
  - Hallucination, visual [Unknown]
  - Neuropathy peripheral [Unknown]
  - Dysaesthesia [Unknown]
  - Paraesthesia [Unknown]
  - Nausea [Unknown]
